FAERS Safety Report 8225851-7 (Version None)
Quarter: 2012Q1

REPORT INFORMATION
  Report Type: 
  Country: None (occurrence: None)
  Receive Date: 20120321
  Receipt Date: 20120317
  Transmission Date: 20120608
  Serious: Yes (Other)
  Sender: FDA-Public Use
  Company Number: US-PFIZER INC-2012070179

PATIENT
  Sex: Male

DRUGS (6)
  1. LYRICA [Suspect]
     Indication: PAIN IN EXTREMITY
     Dosage: 75 MG, DAILY
     Dates: start: 20100919, end: 20100927
  2. LYRICA [Suspect]
     Dosage: 150 MG, UNK
  3. LYRICA [Suspect]
     Dosage: 325 MG, UNK
  4. LYRICA [Suspect]
     Indication: NEURALGIA
     Dosage: 75 MG, 2X/DAY
     Dates: start: 20100928
  5. LYRICA [Suspect]
     Dosage: 75 MG, UNK
  6. LYRICA [Suspect]
     Dosage: 75MG IN MORNING AND 150MG IN NIGHT
     Dates: start: 20101201

REACTIONS (7)
  - EMOTIONAL DISORDER [None]
  - ACTIVITIES OF DAILY LIVING IMPAIRED [None]
  - DYSPNOEA [None]
  - AGITATION [None]
  - PARAESTHESIA [None]
  - LIP SWELLING [None]
  - HYPOAESTHESIA [None]
